FAERS Safety Report 11379025 (Version 1)
Quarter: 2015Q3

REPORT INFORMATION
  Report Type: Spontaneous
  Country: US (occurrence: US)
  Receive Date: 20150811
  Receipt Date: 20150811
  Transmission Date: 20151125
  Serious: Yes (Other)
  Sender: FDA-Public Use
  Company Number: US-ELI_LILLY_AND_COMPANY-US200809004772

PATIENT
  Age: 59 Year
  Sex: Male

DRUGS (6)
  1. ATENOLOL. [Concomitant]
     Active Substance: ATENOLOL
  2. ASPIRIN. [Concomitant]
     Active Substance: ASPIRIN
  3. TRIAMTERENE. [Concomitant]
     Active Substance: TRIAMTERENE
  4. LIPITOR [Concomitant]
     Active Substance: ATORVASTATIN CALCIUM
  5. HYZAAR [Concomitant]
     Active Substance: HYDROCHLOROTHIAZIDE\LOSARTAN POTASSIUM
  6. CIALIS [Suspect]
     Active Substance: TADALAFIL
     Dosage: 10 MG, UNK

REACTIONS (5)
  - Epistaxis [Recovered/Resolved]
  - Hypertension [Recovered/Resolved]
  - Hangover [Unknown]
  - Heart rate increased [Recovered/Resolved]
  - Flushing [Unknown]

NARRATIVE: CASE EVENT DATE: 20080919
